FAERS Safety Report 8012978-8 (Version None)
Quarter: 2011Q4

REPORT INFORMATION
  Report Type: 
  Country: None (occurrence: None)
  Receive Date: 20111229
  Receipt Date: 20111227
  Transmission Date: 20120403
  Serious: No
  Sender: FDA-Public Use
  Company Number: US-BAYER-2011-123911

PATIENT
  Age: 66 Year
  Sex: Female
  Weight: 80.726 kg

DRUGS (1)
  1. ALEVE (CAPLET) [Suspect]
     Indication: BACK PAIN
     Dosage: INITIALLY 1 AND THEN TWICE DAILY
     Route: 048
     Dates: start: 20111001, end: 20111224

REACTIONS (3)
  - NO ADVERSE EVENT [None]
  - PRURITUS [None]
  - URTICARIA [None]
